FAERS Safety Report 9184981 (Version 2)
Quarter: 2013Q2

REPORT INFORMATION
  Report Type: Report from Study
  Country: JP (occurrence: JP)
  Receive Date: 20130325
  Receipt Date: 20130424
  Transmission Date: 20140414
  Serious: Yes (Other)
  Sender: FDA-Public Use
  Company Number: JP-ROCHE-1204858

PATIENT
  Age: 66 Year
  Sex: Male

DRUGS (13)
  1. METHOXY POLYETHYLENE GLYCOL-EPOETIN BETA [Suspect]
     Indication: NEPHROGENIC ANAEMIA
     Route: 058
     Dates: start: 20120905, end: 20120905
  2. METHOXY POLYETHYLENE GLYCOL-EPOETIN BETA [Suspect]
     Indication: NEPHROGENIC ANAEMIA
     Route: 058
     Dates: start: 20121107, end: 20121107
  3. METHOXY POLYETHYLENE GLYCOL-EPOETIN BETA [Suspect]
     Indication: NEPHROGENIC ANAEMIA
     Route: 058
     Dates: start: 20121205, end: 20121205
  4. METHOXY POLYETHYLENE GLYCOL-EPOETIN BETA [Suspect]
     Indication: NEPHROGENIC ANAEMIA
     Route: 058
     Dates: start: 20130109, end: 20130206
  5. METHOXY POLYETHYLENE GLYCOL-EPOETIN BETA [Suspect]
     Indication: NEPHROGENIC ANAEMIA
     Route: 058
     Dates: start: 20130306
  6. FERROMIA [Concomitant]
     Route: 048
     Dates: start: 20120905, end: 20120926
  7. FERROMIA [Concomitant]
     Route: 048
     Dates: start: 20121107
  8. ALFAROL [Concomitant]
     Route: 048
     Dates: start: 20120905
  9. ARTIST [Concomitant]
     Route: 048
  10. NORVASC [Concomitant]
     Route: 048
  11. CARDENALIN [Concomitant]
     Route: 048
  12. NOVORAPID [Concomitant]
     Dosage: DRUG REPORTED AS : NOVORAPID 30 MIX
     Route: 058
  13. CALTAN [Concomitant]
     Route: 048
     Dates: start: 20121107

REACTIONS (1)
  - Gastrointestinal haemorrhage [Recovered/Resolved]
